FAERS Safety Report 6292020-X (Version None)
Quarter: 2009Q3

REPORT INFORMATION
  Report Type: 
  Country: None (occurrence: None)
  Receive Date: 20090730
  Receipt Date: 20090720
  Transmission Date: 20100115
  Serious: Yes (Hospitalization, Other)
  Sender: FDA-Public Use
  Company Number: US-TYCO HEALTHCARE/MALLINCKRODT-T200801230

PATIENT
  Sex: Male

DRUGS (8)
  1. OPTIMARK [Suspect]
     Indication: NUCLEAR MAGNETIC RESONANCE IMAGING
     Dosage: UNK
     Dates: start: 20060330, end: 20060330
  2. OPTIMARK [Suspect]
     Dosage: 20 ML, SINGLE
     Dates: start: 20060921, end: 20060921
  3. RENAGEL [Concomitant]
     Indication: DIALYSIS
     Dosage: 800 MG, TID
  4. PANTOPIAZOLE [Concomitant]
     Indication: DYSPEPSIA
     Dosage: 40 MG, QD
  5. AMBIEN CR [Concomitant]
     Indication: SLEEP DISORDER
     Dosage: 12.5 MG (2 TAB), QD
  6. HYDROCODONE [Concomitant]
     Indication: PAIN
     Dosage: 500 MG, QID
  7. CETIRIZINE [Concomitant]
     Indication: BLOOD PRESSURE
     Dosage: 10 MG, QD
  8. SODIUM BICARBONATE [Concomitant]
     Indication: RENAL DISORDER
     Dosage: 10 MG, BID

REACTIONS (21)
  - ABASIA [None]
  - ANXIETY [None]
  - ARTHRALGIA [None]
  - ARTHRITIS [None]
  - CELLULITIS [None]
  - DYSPEPSIA [None]
  - ECONOMIC PROBLEM [None]
  - EMOTIONAL DISTRESS [None]
  - FALL [None]
  - FATIGUE [None]
  - HAEMATURIA [None]
  - HYPERTENSION [None]
  - KIDNEY INFECTION [None]
  - MALAISE [None]
  - MYALGIA [None]
  - NEPHROGENIC SYSTEMIC FIBROSIS [None]
  - OFF LABEL USE [None]
  - PAIN IN EXTREMITY [None]
  - RENAL OSTEODYSTROPHY [None]
  - SLEEP DISORDER [None]
  - WEIGHT DECREASED [None]
